FAERS Safety Report 18242684 (Version 1)
Quarter: 2020Q3

REPORT INFORMATION
  Report Type: Spontaneous
  Country: US (occurrence: US)
  Receive Date: 20200908
  Receipt Date: 20200908
  Transmission Date: 20201103
  Serious: Yes (Death, Other)
  Sender: FDA-Public Use
  Company Number: US-GILEAD-2020-0493944

PATIENT
  Age: 62 Year
  Sex: Female
  Weight: 112 kg

DRUGS (11)
  1. CEFEPIME [Concomitant]
     Active Substance: CEFEPIME HYDROCHLORIDE
  2. VANCOMYCIN [Concomitant]
     Active Substance: VANCOMYCIN
  3. VERSED [Concomitant]
     Active Substance: MIDAZOLAM HYDROCHLORIDE
  4. REMDESIVIR. [Suspect]
     Active Substance: REMDESIVIR
     Indication: COVID-19
     Route: 065
  5. VASOPRESSIN. [Concomitant]
     Active Substance: VASOPRESSIN
  6. LEVOPHED [Concomitant]
     Active Substance: NOREPINEPHRINE BITARTRATE
  7. FENTANYL. [Concomitant]
     Active Substance: FENTANYL
  8. DEXMEDETOMIDINE. [Concomitant]
     Active Substance: DEXMEDETOMIDINE
  9. LOVENOX [Concomitant]
     Active Substance: ENOXAPARIN SODIUM
  10. DEXAMETHASONE. [Concomitant]
     Active Substance: DEXAMETHASONE
  11. PLASMA [Concomitant]
     Active Substance: HUMAN PLASMA

REACTIONS (1)
  - Tracheomalacia [Fatal]

NARRATIVE: CASE EVENT DATE: 20200821
